FAERS Safety Report 19295240 (Version 2)
Quarter: 2021Q2

REPORT INFORMATION
  Report Type: Spontaneous
  Country: CN (occurrence: CN)
  Receive Date: 20210524
  Receipt Date: 20210527
  Transmission Date: 20210717
  Serious: Yes (Other)
  Sender: FDA-Public Use
  Company Number: CN-GLAXOSMITHKLINE-CNCH2021APC028961

PATIENT
  Age: 59 Year
  Sex: Male
  Weight: 70 kg

DRUGS (2)
  1. FENBID (IBUPROFEN) [Suspect]
     Active Substance: IBUPROFEN
     Indication: TOOTHACHE
     Dosage: 0.3 G, BID
     Route: 048
     Dates: start: 20210509, end: 20210509
  2. LEVOFLOXACIN HYDROCHLORIDE CAPSULE [Suspect]
     Active Substance: LEVOFLOXACIN HYDROCHLORIDE
     Indication: TOOTHACHE
     Dosage: 0.2 G, BID
     Route: 048
     Dates: start: 20210509, end: 20210509

REACTIONS (8)
  - Skin ulcer [Not Recovered/Not Resolved]
  - Fixed eruption [Not Recovered/Not Resolved]
  - Macule [Not Recovered/Not Resolved]
  - Pruritus [Not Recovered/Not Resolved]
  - Pain [Not Recovered/Not Resolved]
  - Dry skin [Not Recovered/Not Resolved]
  - Erythema [Not Recovered/Not Resolved]
  - Pain in extremity [Not Recovered/Not Resolved]

NARRATIVE: CASE EVENT DATE: 20210509
